FAERS Safety Report 22054569 (Version 1)
Quarter: 2023Q1

REPORT INFORMATION
  Report Type: Spontaneous
  Country: US (occurrence: US)
  Receive Date: 20230302
  Receipt Date: 20230302
  Transmission Date: 20230418
  Serious: No
  Sender: FDA-Public Use
  Company Number: US-SA-SAC20230301001506

PATIENT
  Sex: Female
  Weight: 102 kg

DRUGS (11)
  1. DUPIXENT [Suspect]
     Active Substance: DUPILUMAB
     Indication: Dermatitis atopic
     Dosage: 300 MG, QOW
     Route: 058
     Dates: start: 20200806
  2. CLARITIN [Concomitant]
     Active Substance: LORATADINE
  3. TACROLIMUS [Concomitant]
     Active Substance: TACROLIMUS
  4. FAMOTIDINE [Concomitant]
     Active Substance: FAMOTIDINE
  5. OMEPRAZOLE [Concomitant]
     Active Substance: OMEPRAZOLE
  6. FLUOCINOLONE ACETONIDE [Concomitant]
     Active Substance: FLUOCINOLONE ACETONIDE
  7. KETOCONAZOLE [Concomitant]
     Active Substance: KETOCONAZOLE
  8. ERYTHROMYCIN [Concomitant]
     Active Substance: ERYTHROMYCIN
  9. ONDANSETRON [Concomitant]
     Active Substance: ONDANSETRON
  10. TRIAMCINOLONE ACETONIDE [Concomitant]
     Active Substance: TRIAMCINOLONE ACETONIDE
  11. ALLERGY RELIEF [LORATADINE] [Concomitant]

REACTIONS (1)
  - Injection site pain [Unknown]
